FAERS Safety Report 5714595-9 (Version None)
Quarter: 2008Q2

REPORT INFORMATION
  Report Type: 
  Country: None (occurrence: None)
  Receive Date: 20080423
  Receipt Date: 20080415
  Transmission Date: 20081010
  Serious: Yes (Hospitalization)
  Sender: FDA-Public Use
  Company Number: A0718712A

PATIENT
  Age: 51 Year
  Sex: Male
  Weight: 92.7 kg

DRUGS (8)
  1. CHLORPROMAZINE HYDROCHLORIDE [Suspect]
     Indication: SCHIZOAFFECTIVE DISORDER
     Dosage: 200MG AT NIGHT
     Route: 048
     Dates: start: 20070605, end: 20080107
  2. CLOZAPINE [Suspect]
     Indication: SCHIZOAFFECTIVE DISORDER
     Route: 048
     Dates: start: 20070501, end: 20080109
  3. BENZTROPINE MESYLATE [Suspect]
     Indication: DRUG USE FOR UNKNOWN INDICATION
     Route: 048
     Dates: start: 20070924, end: 20080107
  4. DIPHENHYDRAMINE HYDROCHLORIDE [Suspect]
     Indication: INSOMNIA
     Dosage: 100MG AT NIGHT
     Route: 048
     Dates: start: 20070605, end: 20080107
  5. ENALAPRIL MALEATE [Concomitant]
  6. DYAZIDE [Concomitant]
  7. HALDOL [Concomitant]
     Indication: AGITATION
     Route: 030
  8. ATIVAN [Concomitant]
     Indication: AGITATION

REACTIONS (6)
  - CHANGE OF BOWEL HABIT [None]
  - DECREASED APPETITE [None]
  - EATING DISORDER [None]
  - FAECALOMA [None]
  - INTESTINAL OBSTRUCTION [None]
  - LETHARGY [None]
